FAERS Safety Report 6104004-2 (Version None)
Quarter: 2009Q1

REPORT INFORMATION
  Report Type: 
  Country: None (occurrence: None)
  Receive Date: 20090227
  Receipt Date: 20090224
  Transmission Date: 20090719
  Serious: Yes (Other)
  Sender: FDA-Public Use
  Company Number: 2009SP004290

PATIENT
  Age: 60 Year
  Sex: Female

DRUGS (2)
  1. PEG-INTRON [Suspect]
     Indication: HEPATITIS C
     Dosage: 100 MCG;QW;SC
     Route: 058
     Dates: start: 20081101, end: 20090224
  2. REBETOL [Suspect]
     Indication: HEPATITIS C
     Dosage: 400 MG;QD;SC
     Route: 058
     Dates: start: 20081101, end: 20090224

REACTIONS (1)
  - RETINAL DETACHMENT [None]
